FAERS Safety Report 7583161-5 (Version None)
Quarter: 2011Q2

REPORT INFORMATION
  Report Type: 
  Country: None (occurrence: None)
  Receive Date: 20110630
  Receipt Date: 20110617
  Transmission Date: 20111010
  Serious: Yes (Hospitalization)
  Sender: FDA-Public Use
  Company Number: IT-RANBAXY-2011R1-45493

PATIENT
  Sex: Female

DRUGS (1)
  1. ACETAMINOPHEN [Suspect]
     Indication: PRODUCT USED FOR UNKNOWN INDICATION
     Dosage: UNK
     Route: 065

REACTIONS (6)
  - JAUNDICE [None]
  - BLOOD BILIRUBIN INCREASED [None]
  - PRURITUS [None]
  - PYREXIA [None]
  - URINE COLOUR ABNORMAL [None]
  - ABNORMAL FAECES [None]
